FAERS Safety Report 12810004 (Version 1)
Quarter: 2016Q4

REPORT INFORMATION
  Report Type: Spontaneous
  Country: US (occurrence: US)
  Receive Date: 20161004
  Receipt Date: 20161004
  Transmission Date: 20170207
  Serious: Yes (Hospitalization)
  Sender: FDA-Public Use
  Company Number: None

PATIENT
  Age: 94 Year
  Sex: Male
  Weight: 98.2 kg

DRUGS (2)
  1. SULFAMETHOXAZOLE/TRIMETHOPRIM [Suspect]
     Active Substance: SULFAMETHOXAZOLE\TRIMETHOPRIM
     Indication: URINARY TRACT INFECTION
     Dosage: SULFAMETHOXAZOLE/TRIMETHOPRIM 800/160 MG - BID PO
     Route: 048
     Dates: start: 20160921, end: 20160925
  2. QUINAPRIL. [Suspect]
     Active Substance: QUINAPRIL
     Indication: HYPERTENSION
     Route: 048
     Dates: start: 20120130, end: 20160928

REACTIONS (3)
  - Dyspnoea [None]
  - Wheezing [None]
  - Angioedema [None]

NARRATIVE: CASE EVENT DATE: 20160928
